FAERS Safety Report 16542038 (Version 1)
Quarter: 2019Q3

REPORT INFORMATION
  Report Type: Report from Study
  Country: US (occurrence: US)
  Receive Date: 20190708
  Receipt Date: 20190708
  Transmission Date: 20191004
  Serious: No
  Sender: FDA-Public Use
  Company Number: US-BEH-2019101742

PATIENT
  Age: 29 Year
  Sex: Female
  Weight: 54.42 kg

DRUGS (2)
  1. HAEGARDA [Suspect]
     Active Substance: HUMAN C1-ESTERASE INHIBITOR
     Indication: PROPHYLAXIS
  2. HAEGARDA [Suspect]
     Active Substance: HUMAN C1-ESTERASE INHIBITOR
     Indication: HEREDITARY ANGIOEDEMA
     Dosage: 8 UNK, BIW
     Route: 065
     Dates: start: 20190402, end: 2019

REACTIONS (5)
  - Product dose omission [Unknown]
  - No adverse event [Unknown]
  - Gastroenteritis viral [Recovered/Resolved]
  - Diarrhoea [Unknown]
  - Stress [Unknown]

NARRATIVE: CASE EVENT DATE: 20190419
